FAERS Safety Report 8586019-8 (Version None)
Quarter: 2012Q3

REPORT INFORMATION
  Report Type: 
  Country: None (occurrence: None)
  Receive Date: 20120730
  Receipt Date: 20120718
  Transmission Date: 20120928
  Serious: Yes (Other)
  Sender: FDA-Public Use
  Company Number: 7148665

PATIENT
  Age: 30 Year
  Sex: Male

DRUGS (1)
  1. LEVOTHYROXINE SODIUM [Suspect]
     Indication: HYPOTHYROIDISM
     Dosage: (25 MCG) ORAL ; (125 MGC) ORAL ; (100 MCG) ORAL
     Route: 048
     Dates: start: 20120601, end: 20120625

REACTIONS (31)
  - PAIN IN EXTREMITY [None]
  - SALIVARY HYPERSECRETION [None]
  - MUSCULAR WEAKNESS [None]
  - AGITATION [None]
  - BENIGN INTRACRANIAL HYPERTENSION [None]
  - INTRAOCULAR PRESSURE INCREASED [None]
  - SENSITIVITY OF TEETH [None]
  - INFLAMMATION [None]
  - BULIMIA NERVOSA [None]
  - HYPOGLYCAEMIA [None]
  - FLUID RETENTION [None]
  - CHEST PAIN [None]
  - VERTIGO [None]
  - ERECTILE DYSFUNCTION [None]
  - FLUSHING [None]
  - HYPERHIDROSIS [None]
  - TREMOR [None]
  - VOMITING [None]
  - HEART RATE IRREGULAR [None]
  - SLEEP DISORDER [None]
  - PALPITATIONS [None]
  - HEADACHE [None]
  - DIARRHOEA [None]
  - FATIGUE [None]
  - MUSCLE SPASMS [None]
  - PYREXIA [None]
  - WEIGHT INCREASED [None]
  - PERFORMANCE STATUS DECREASED [None]
  - SINUSITIS [None]
  - OROPHARYNGEAL PAIN [None]
  - BLOOD PRESSURE INCREASED [None]
